FAERS Safety Report 8379700-7 (Version None)
Quarter: 2012Q2

REPORT INFORMATION
  Report Type: 
  Country: None (occurrence: None)
  Receive Date: 20120523
  Receipt Date: 20120509
  Transmission Date: 20120825
  Serious: Yes (Other)
  Sender: FDA-Public Use
  Company Number: BR-RANBAXY-2012RR-56013

PATIENT
  Age: 52 Year
  Sex: Male

DRUGS (1)
  1. ATORVASTATIN CALCIUM [Suspect]
     Indication: DYSLIPIDAEMIA
     Dosage: 10 MG, QD
     Route: 065

REACTIONS (2)
  - CEREBELLAR ATAXIA [None]
  - HYPERGLYCAEMIA [None]
